FAERS Safety Report 20160131 (Version 1)
Quarter: 2021Q4

REPORT INFORMATION
  Report Type: Spontaneous
  Country: US (occurrence: None)
  Receive Date: 20211207
  Receipt Date: 20211207
  Transmission Date: 20220304
  Serious: Yes (Death)
  Sender: FDA-Public Use
  Company Number: None

PATIENT
  Age: 75 Year
  Sex: Male

DRUGS (1)
  1. OFEV [Suspect]
     Active Substance: NINTEDANIB
     Indication: Interstitial lung disease
     Dosage: FREQUENCY : TWICE A DAY;?
     Route: 048
     Dates: start: 20210305, end: 20211120

REACTIONS (4)
  - Acute respiratory failure [None]
  - Atrial fibrillation [None]
  - Hypotension [None]
  - Pulmonary fibrosis [None]

NARRATIVE: CASE EVENT DATE: 20211120
